FAERS Safety Report 19918107 (Version 1)
Quarter: 2021Q4

REPORT INFORMATION
  Report Type: Spontaneous
  Country: US (occurrence: US)
  Receive Date: 20211005
  Receipt Date: 20211005
  Transmission Date: 20220303
  Serious: Yes (unspecified)
  Sender: FDA-Public Use
  Company Number: None

PATIENT
  Age: 45 Year
  Sex: Male
  Weight: 95.4 kg

DRUGS (3)
  1. CLINDAMYCIN [Suspect]
     Active Substance: CLINDAMYCIN
     Indication: Cellulitis
     Dosage: ?          QUANTITY:1 CAPSULE(S);
     Route: 048
     Dates: start: 20211001, end: 20211004
  2. DESCOVY (PREP) [Concomitant]
  3. IBESARTAIN HTCZ [Concomitant]

REACTIONS (3)
  - Diarrhoea [None]
  - Gastrooesophageal reflux disease [None]
  - Dysphagia [None]

NARRATIVE: CASE EVENT DATE: 20211004
